FAERS Safety Report 17088121 (Version 1)
Quarter: 2019Q4

REPORT INFORMATION
  Report Type: Spontaneous
  Country: CA (occurrence: CA)
  Receive Date: 20191128
  Receipt Date: 20191128
  Transmission Date: 20200122
  Serious: Yes (Other)
  Sender: FDA-Public Use
  Company Number: CA-PFIZER INC-2019511663

PATIENT
  Sex: Female

DRUGS (1)
  1. PALBOCICLIB [Suspect]
     Active Substance: PALBOCICLIB
     Indication: BREAST CANCER METASTATIC
     Dosage: 75 MG, 2 WEEKS ON/2 WEEKS OFF

REACTIONS (4)
  - Platelet count decreased [Unknown]
  - Myelodysplastic syndrome [Unknown]
  - Off label use [Unknown]
  - Second primary malignancy [Unknown]
